FAERS Safety Report 6676771-0 (Version None)
Quarter: 2010Q2

REPORT INFORMATION
  Report Type: 
  Country: None (occurrence: None)
  Receive Date: 20100412
  Receipt Date: 20100330
  Transmission Date: 20101027
  Serious: Yes (Hospitalization)
  Sender: FDA-Public Use
  Company Number: JP-ROCHE-695432

PATIENT
  Sex: Female

DRUGS (11)
  1. CAPECITABINE [Suspect]
     Indication: COLON CANCER
     Dosage: DRUG: XELODA 300(CAPECITABINE)
     Route: 048
     Dates: start: 20090530, end: 20090612
  2. CAPECITABINE [Suspect]
     Route: 048
     Dates: start: 20090620, end: 20090703
  3. CAPECITABINE [Suspect]
     Route: 048
     Dates: start: 20090711, end: 20090724
  4. CAPECITABINE [Suspect]
     Route: 048
     Dates: start: 20090801, end: 20090814
  5. CAPECITABINE [Suspect]
     Route: 048
     Dates: start: 20090829, end: 20090911
  6. CAPECITABINE [Suspect]
     Route: 048
     Dates: start: 20090919, end: 20090921
  7. CAPECITABINE [Suspect]
     Route: 048
     Dates: start: 20091017, end: 20091030
  8. CAPECITABINE [Suspect]
     Route: 048
     Dates: start: 20091107, end: 20091120
  9. PYDOXAL [Concomitant]
     Dosage: DRUG: PYDOXAL TAB(PYRIDOXAL PHOSPHATE)
     Route: 048
     Dates: start: 20090530, end: 20091102
  10. PASTARON [Concomitant]
     Dosage: FORM: OINTMENT AND CREAM, DOSAGE IS UNCERTAIN.
     Route: 061
     Dates: start: 20090530, end: 20091120
  11. CANDESARTAN CILEXETIL [Concomitant]
     Dosage: DRUG: BLOPRESS(CANDESARTAN CILEXETIL)
     Route: 048

REACTIONS (2)
  - HERPES ZOSTER [None]
  - NEUTROPHIL COUNT DECREASED [None]
